FAERS Safety Report 22193835 (Version 1)
Quarter: 2023Q2

REPORT INFORMATION
  Report Type: Report from Study
  Country: BG (occurrence: BG)
  Receive Date: 20230410
  Receipt Date: 20230410
  Transmission Date: 20230722
  Serious: Yes (Hospitalization, Other)
  Sender: FDA-Public Use
  Company Number: BG-ABBVIE-4720687

PATIENT
  Age: 70 Year
  Sex: Male

DRUGS (2)
  1. CARBIDOPA\LEVODOPA [Suspect]
     Active Substance: CARBIDOPA\LEVODOPA
     Indication: Parkinson^s disease
     Dosage: MD-7,5 ML CR-3,6 ML/H ED-1,5 ML
     Route: 050
     Dates: start: 20161011
  2. CARBIDOPA\LEVODOPA [Suspect]
     Active Substance: CARBIDOPA\LEVODOPA

REACTIONS (6)
  - Gastric ulcer [Not Recovered/Not Resolved]
  - Medical device pain [Unknown]
  - Gastritis [Unknown]
  - Intestinal metaplasia [Not Recovered/Not Resolved]
  - Device dislocation [Unknown]
  - Atrophy [Unknown]

NARRATIVE: CASE EVENT DATE: 20230320
